FAERS Safety Report 15189604 (Version 1)
Quarter: 2018Q3

REPORT INFORMATION
  Report Type: Spontaneous
  Country: JM (occurrence: JM)
  Receive Date: 20180724
  Receipt Date: 20180724
  Transmission Date: 20181010
  Serious: Yes (Other)
  Sender: FDA-Public Use
  Company Number: JM-ROCHE-2155765

PATIENT
  Age: 38 Year
  Sex: Female
  Weight: 76.27 kg

DRUGS (2)
  1. HERCEPTIN [Suspect]
     Active Substance: TRASTUZUMAB
     Indication: BREAST CANCER
     Route: 065
     Dates: start: 201606
  2. HERCEPTIN [Suspect]
     Active Substance: TRASTUZUMAB
     Indication: BRAIN NEOPLASM MALIGNANT
     Route: 065
     Dates: start: 20161205, end: 20171205

REACTIONS (4)
  - Bone operation [Unknown]
  - Gait disturbance [Not Recovered/Not Resolved]
  - Breast cancer metastatic [Unknown]
  - Breast cancer metastatic [Unknown]

NARRATIVE: CASE EVENT DATE: 201801
